FAERS Safety Report 15276286 (Version 2)
Quarter: 2018Q4

REPORT INFORMATION
  Report Type: Spontaneous
  Country: US (occurrence: US)
  Receive Date: 20180814
  Receipt Date: 20181011
  Transmission Date: 20190204
  Serious: No
  Sender: FDA-Public Use
  Company Number: US-ASTRAZENECA-2018SF00644

PATIENT
  Age: 21107 Day
  Sex: Female

DRUGS (1)
  1. SYMBICORT [Suspect]
     Active Substance: BUDESONIDE\FORMOTEROL FUMARATE DIHYDRATE
     Indication: ASTHMA
     Dosage: 160/4.5MG, UNKNOWN UNKNOWN
     Route: 055

REACTIONS (5)
  - Product use issue [Unknown]
  - Device malfunction [Unknown]
  - Device failure [Unknown]
  - Hypersensitivity [Unknown]
  - Product use complaint [Unknown]

NARRATIVE: CASE EVENT DATE: 20180731
